FAERS Safety Report 17464561 (Version 1)
Quarter: 2020Q1

REPORT INFORMATION
  Report Type: Spontaneous
  Country: IT (occurrence: IT)
  Receive Date: 20200226
  Receipt Date: 20200226
  Transmission Date: 20200409
  Serious: Yes (Hospitalization)
  Sender: FDA-Public Use
  Company Number: IT-PFIZER INC-2020083601

PATIENT
  Age: 69 Year
  Sex: Male

DRUGS (3)
  1. KEYTRUDA [Suspect]
     Active Substance: PEMBROLIZUMAB
     Indication: NON-SMALL CELL LUNG CANCER METASTATIC
     Dosage: 200 MG, CYCLIC
     Route: 042
     Dates: start: 20190625, end: 20190716
  2. XALKORI [Suspect]
     Active Substance: CRIZOTINIB
     Indication: NON-SMALL CELL LUNG CANCER METASTATIC
     Dosage: 500 MG, CYCLIC
     Route: 048
     Dates: start: 20190729, end: 20191203
  3. XGEVA [Concomitant]
     Active Substance: DENOSUMAB
     Indication: NON-SMALL CELL LUNG CANCER METASTATIC
     Dosage: 120 MG, UNK
     Route: 058
     Dates: start: 20190617, end: 20190906

REACTIONS (3)
  - Hypertransaminasaemia [Recovering/Resolving]
  - Rash [Recovering/Resolving]
  - Hepatitis acute [Recovering/Resolving]

NARRATIVE: CASE EVENT DATE: 20191002
